FAERS Safety Report 5053180-1 (Version None)
Quarter: 2006Q3

REPORT INFORMATION
  Report Type: 
  Country: None (occurrence: None)
  Receive Date: 20060711
  Receipt Date: 20060629
  Transmission Date: 20061208
  Serious: Yes (Death, Hospitalization)
  Sender: FDA-Public Use
  Company Number: HQWYE766311MAR04

PATIENT
  Age: 60 Year
  Sex: Male
  Weight: 118.49 kg

DRUGS (13)
  1. MYLOTARG [Suspect]
     Indication: ACUTE MYELOID LEUKAEMIA
     Dosage: INTRAVENOUS, 18MG 1X PER 1 DAY; INTRAVENOUS
     Route: 042
     Dates: start: 20040128, end: 20040128
  2. MYLOTARG [Suspect]
     Indication: ACUTE MYELOID LEUKAEMIA
     Dosage: INTRAVENOUS, 18MG 1X PER 1 DAY; INTRAVENOUS
     Route: 042
     Dates: start: 20040211, end: 20040211
  3. PROTONIX [Concomitant]
  4. ZOLOFT [Concomitant]
  5. COMBIVENT [Concomitant]
  6. COREG [Concomitant]
  7. NEURONTIN [Concomitant]
  8. LEVAQUIN [Concomitant]
  9. LASIX [Concomitant]
  10. FLUCONAZOLE [Concomitant]
  11. HUMULIN 70/30 [Concomitant]
  12. DILTIAZEM HCL [Concomitant]
  13. POTASSIUM CHLORIDE [Concomitant]

REACTIONS (11)
  - ACUTE MYELOID LEUKAEMIA [None]
  - BACTERIA STOOL IDENTIFIED [None]
  - DIARRHOEA [None]
  - FEBRILE NEUTROPENIA [None]
  - HAEMOGLOBIN DECREASED [None]
  - HYPONATRAEMIA [None]
  - MALIGNANT NEOPLASM PROGRESSION [None]
  - NAUSEA [None]
  - RENAL FAILURE [None]
  - RETCHING [None]
  - STAPHYLOCOCCAL INFECTION [None]
